FAERS Safety Report 20815600 (Version 1)
Quarter: 2022Q2

REPORT INFORMATION
  Report Type: Spontaneous
  Country: US (occurrence: US)
  Receive Date: 20220511
  Receipt Date: 20220511
  Transmission Date: 20220721
  Serious: No
  Sender: FDA-Public Use
  Company Number: US-PFIZER INC-202101374871

PATIENT
  Age: 59 Year
  Sex: Male
  Weight: 95.25 kg

DRUGS (1)
  1. SULFASALAZINE [Suspect]
     Active Substance: SULFASALAZINE
     Indication: Crohn^s disease
     Dosage: 300 MG, 4X/DAY,(4 TIMES DAILY)
     Route: 048
     Dates: start: 2021

REACTIONS (4)
  - Illness [Unknown]
  - Retching [Unknown]
  - Product use complaint [Unknown]
  - Off label use [Unknown]

NARRATIVE: CASE EVENT DATE: 20210101
